FAERS Safety Report 17075635 (Version 1)
Quarter: 2019Q4

REPORT INFORMATION
  Report Type: Spontaneous
  Country: US (occurrence: US)
  Receive Date: 20191028
  Receipt Date: 20191028
  Transmission Date: 20200122
  Serious: No
  Sender: FDA-Public Use
  Company Number: None

PATIENT
  Age: 60 Year
  Sex: Female
  Weight: 119.75 kg

DRUGS (1)
  1. PAROXETINE MESYLATE [Suspect]
     Active Substance: PAROXETINE MESYLATE
     Indication: MENOPAUSAL SYMPTOMS
     Dosage: ?          OTHER DOSE:CAPSULE ;?
     Route: 048

REACTIONS (1)
  - Nausea [None]

NARRATIVE: CASE EVENT DATE: 20190820
